FAERS Safety Report 13698231 (Version 2)
Quarter: 2017Q3

REPORT INFORMATION
  Report Type: Spontaneous
  Country: US (occurrence: US)
  Receive Date: 20170628
  Receipt Date: 20170731
  Transmission Date: 20171127
  Serious: No
  Sender: FDA-Public Use
  Company Number: US-PFIZER INC-2017280111

PATIENT
  Age: 69 Year
  Sex: Male
  Weight: 124.7 kg

DRUGS (1)
  1. XANAX [Suspect]
     Active Substance: ALPRAZOLAM
     Indication: ANXIETY
     Dosage: 0.5 MG, 3X/DAY
     Dates: start: 1991

REACTIONS (2)
  - Condition aggravated [Unknown]
  - Anxiety [Unknown]
